FAERS Safety Report 9376140 (Version 1)
Quarter: 2013Q2

REPORT INFORMATION
  Report Type: Spontaneous
  Country: US (occurrence: US)
  Receive Date: 20130630
  Receipt Date: 20130630
  Transmission Date: 20140414
  Serious: Yes (Hospitalization, Other)
  Sender: FDA-Public Use
  Company Number: US-TEVA-415370USA

PATIENT
  Age: 59 Year
  Sex: Female

DRUGS (1)
  1. ADIPEX-P CAPSULES [Suspect]
     Route: 065

REACTIONS (5)
  - Tubulointerstitial nephritis [Recovering/Resolving]
  - Pyrexia [None]
  - Nausea [None]
  - Fatigue [None]
  - Dyspnoea [None]
